FAERS Safety Report 4383708-6 (Version None)
Quarter: 2004Q2

REPORT INFORMATION
  Report Type: 
  Country: None (occurrence: None)
  Receive Date: 20040618
  Receipt Date: 20040609
  Transmission Date: 20050107
  Serious: Yes (Death)
  Sender: FDA-Public Use
  Company Number: BRO-007573

PATIENT
  Age: 70 Year
  Sex: Male

DRUGS (5)
  1. IOPAMIDOL [Suspect]
     Indication: COMPUTERISED TOMOGRAM
     Dosage: 80 ML IV
     Route: 042
     Dates: start: 20040507, end: 20040507
  2. IOPAMIDOL [Suspect]
     Indication: INTRACRANIAL ANEURYSM
     Dosage: 80 ML IV
     Route: 042
     Dates: start: 20040507, end: 20040507
  3. FAMOTIDINE [Concomitant]
  4. LAC B (LACTOBACILLUS BIFIDUS, LYOPHILIZED) [Concomitant]
  5. ASPIRIN [Concomitant]

REACTIONS (7)
  - BLOOD PRESSURE DECREASED [None]
  - CARDIO-RESPIRATORY ARREST [None]
  - CONTRAST MEDIA REACTION [None]
  - LEFT VENTRICULAR FAILURE [None]
  - PULMONARY OEDEMA [None]
  - RENAL FAILURE ACUTE [None]
  - VOMITING [None]
